FAERS Safety Report 11209407 (Version 1)
Quarter: 2015Q2

REPORT INFORMATION
  Report Type: Report from Study
  Country: FR (occurrence: FR)
  Receive Date: 20150622
  Receipt Date: 20150622
  Transmission Date: 20150821
  Serious: Yes (Hospitalization)
  Sender: FDA-Public Use
  Company Number: FR-GLAXOSMITHKLINE-FR2015GSK085179

PATIENT
  Age: 67 Year
  Sex: Male

DRUGS (8)
  1. KARDEGIC [Concomitant]
     Active Substance: ASPIRIN LYSINE
  2. TAHOR [Concomitant]
     Active Substance: ATORVASTATIN CALCIUM
  3. ALDACTONE [Concomitant]
     Active Substance: SPIRONOLACTONE
  4. CRESTOR [Concomitant]
     Active Substance: ROSUVASTATIN CALCIUM
  5. PLAVIX [Concomitant]
     Active Substance: CLOPIDOGREL BISULFATE
  6. RAMIPRIL. [Concomitant]
     Active Substance: RAMIPRIL
  7. OMEGA-3-ACID ETHYL ESTERS. [Suspect]
     Active Substance: OMEGA-3-ACID ETHYL ESTERS
     Indication: ISCHAEMIC HEART DISEASE PROPHYLAXIS
  8. TEMERIT [Concomitant]
     Active Substance: NEBIVOLOL

REACTIONS (1)
  - Hernia [Unknown]

NARRATIVE: CASE EVENT DATE: 2012
